FAERS Safety Report 9179030 (Version 1)
Quarter: 2013Q1

REPORT INFORMATION
  Report Type: Spontaneous
  Country: US (occurrence: US)
  Receive Date: 20130321
  Receipt Date: 20130321
  Transmission Date: 20140127
  Serious: Yes (Hospitalization)
  Sender: FDA-Public Use
  Company Number: US-ROCHE-1204303

PATIENT
  Sex: Male

DRUGS (2)
  1. PEGASYS [Suspect]
     Indication: HEPATITIS C
     Route: 065
  2. RIBASPHERE [Suspect]
     Indication: HEPATITIS C
     Route: 065

REACTIONS (3)
  - Gallbladder disorder [Unknown]
  - Pancreatitis [Unknown]
  - Upper-airway cough syndrome [Unknown]
